FAERS Safety Report 5683932-6 (Version None)
Quarter: 2008Q1

REPORT INFORMATION
  Report Type: 
  Country: None (occurrence: None)
  Receive Date: 20080328
  Receipt Date: 20080318
  Transmission Date: 20080703
  Serious: Yes (Other)
  Sender: FDA-Public Use
  Company Number: PHHY2008JP03407

PATIENT
  Age: 28 Year
  Sex: Female

DRUGS (2)
  1. VOLTAREN [Suspect]
     Indication: ARTHRALGIA
     Dosage: 75 MG/ DAY
     Route: 048
  2. NEUROTROPIN [Concomitant]
     Route: 048
     Dates: start: 20040101

REACTIONS (1)
  - INFERTILITY [None]
